FAERS Safety Report 13736020 (Version 1)
Quarter: 2017Q3

REPORT INFORMATION
  Report Type: Spontaneous
  Country: US (occurrence: US)
  Receive Date: 20170707
  Receipt Date: 20170707
  Transmission Date: 20171127
  Serious: No
  Sender: FDA-Public Use
  Company Number: None

PATIENT
  Sex: Female

DRUGS (1)
  1. HUMIRA [Suspect]
     Active Substance: ADALIMUMAB
     Indication: PRODUCT USED FOR UNKNOWN INDICATION
     Dosage: 40MG EVERY OTHER WEEK SUBQ
     Route: 058
     Dates: start: 20170616

REACTIONS (4)
  - Injection site swelling [None]
  - Injection site reaction [None]
  - Injection site erythema [None]
  - Injection site pruritus [None]
